FAERS Safety Report 13903031 (Version 1)
Quarter: 2017Q3

REPORT INFORMATION
  Report Type: Spontaneous
  Country: DE (occurrence: DE)
  Receive Date: 20170824
  Receipt Date: 20170824
  Transmission Date: 20171127
  Serious: Yes (Hospitalization)
  Sender: FDA-Public Use
  Company Number: GXKR2017DE004186

PATIENT
  Sex: Female

DRUGS (1)
  1. CIPRO 1A PHARMA [Suspect]
     Active Substance: CIPROFLOXACIN\CIPROFLOXACIN HYDROCHLORIDE
     Indication: CYSTITIS
     Dosage: 250 MG, BID
     Route: 048

REACTIONS (6)
  - Myalgia [Unknown]
  - Bone pain [Unknown]
  - Lip blister [Unknown]
  - Tendon pain [Unknown]
  - Nystagmus [Unknown]
  - Gingival bleeding [Unknown]
